FAERS Safety Report 5830264-9 (Version None)
Quarter: 2008Q3

REPORT INFORMATION
  Report Type: 
  Country: None (occurrence: None)
  Receive Date: 20080801
  Receipt Date: 20080717
  Transmission Date: 20090109
  Serious: Yes (Hospitalization)
  Sender: FDA-Public Use
  Company Number: CA-GENENTECH-265139

PATIENT
  Sex: Male

DRUGS (5)
  1. AVASTIN [Suspect]
     Indication: METASTASES TO PERITONEUM
     Dosage: UNK
     Route: 042
     Dates: start: 20080501
  2. IRINOTECAN HCL [Suspect]
     Indication: METASTASES TO PERITONEUM
     Dosage: 380 MG, Q2W
     Route: 042
     Dates: start: 20080501
  3. FLUOROURACIL [Suspect]
     Indication: METASTASES TO PERITONEUM
     Dosage: 844 MG, QD
     Route: 042
     Dates: start: 20080501
  4. LIPITOR [Suspect]
     Indication: HYPERLIPIDAEMIA
     Dosage: 40 MG, QD
     Route: 048
     Dates: start: 20080101, end: 20080717
  5. FOLINIC ACID [Concomitant]
     Indication: DRUG USE FOR UNKNOWN INDICATION
     Dosage: UNK
     Dates: start: 20080501

REACTIONS (3)
  - ABDOMINAL PAIN [None]
  - HEPATIC FUNCTION ABNORMAL [None]
  - JAUNDICE [None]
